FAERS Safety Report 4311368-9 (Version None)
Quarter: 2004Q1

REPORT INFORMATION
  Report Type: 
  Country: None (occurrence: None)
  Receive Date: 20040302
  Receipt Date: 20030530
  Transmission Date: 20041129
  Serious: Yes (Life-Threatening)
  Sender: FDA-Public Use
  Company Number: BDI-005178

PATIENT
  Age: 61 Year
  Sex: Female
  Weight: 86.5 kg

DRUGS (4)
  1. ISOVUE-370 [Suspect]
     Indication: CATHETERISATION CARDIAC
     Dosage: 75 ML UNK IA
     Dates: start: 20030511, end: 20030511
  2. ISOVUE-370 [Suspect]
     Indication: CHEST PAIN
     Dosage: 75 ML UNK IA
     Dates: start: 20030511, end: 20030511
  3. INTEGRILIN [Concomitant]
  4. LOPID [Concomitant]

REACTIONS (6)
  - BLOOD PRESSURE DECREASED [None]
  - ERYTHEMA [None]
  - FEELING ABNORMAL [None]
  - PALLOR [None]
  - VENTRICULAR TACHYCARDIA [None]
  - WHEEZING [None]
